FAERS Safety Report 17337468 (Version 1)
Quarter: 2020Q1

REPORT INFORMATION
  Report Type: Report from Study
  Country: IT (occurrence: IT)
  Receive Date: 20200129
  Receipt Date: 20200129
  Transmission Date: 20200409
  Serious: Yes (Hospitalization)
  Sender: FDA-Public Use
  Company Number: IT-TEVA-2020-IT-1174574

PATIENT
  Age: 76 Year
  Sex: Female

DRUGS (9)
  1. METFORMIN [Suspect]
     Active Substance: METFORMIN HYDROCHLORIDE
     Indication: TYPE 2 DIABETES MELLITUS
     Dosage: 1500 MG PER DAY
     Route: 048
     Dates: start: 20160301, end: 20191023
  2. TAVOR [Concomitant]
  3. ZYLORIC 100 MG COMPRESSE [Concomitant]
     Route: 048
  4. TAREG [Concomitant]
     Active Substance: VALSARTAN
  5. LASITONE 25 MG + 37 MG CAPSULE RIGIDE [Concomitant]
     Active Substance: FUROSEMIDE\SPIRONOLACTONE
  6. CARDIOASPIRIN 100 MG COMPRESSE GASTRORESISTENTI [Concomitant]
     Active Substance: ASPIRIN
  7. BYDUREON [Suspect]
     Active Substance: EXENATIDE
     Indication: TYPE 2 DIABETES MELLITUS
     Dosage: 2 MG PER WEEK,
     Route: 058
     Dates: start: 20160322, end: 20191023
  8. SIVASTIN 10 MG COMPRESSE RIVESTITE CON FILM [Concomitant]
  9. VASEXTEN 10 MG CAPSULE A RILASCIO MODIFICATO [Concomitant]
     Active Substance: BARNIDIPINE HYDROCHLORIDE

REACTIONS (1)
  - Acute kidney injury [Recovered/Resolved]

NARRATIVE: CASE EVENT DATE: 20191023
